FAERS Safety Report 5336584-9 (Version None)
Quarter: 2007Q2

REPORT INFORMATION
  Report Type: 
  Country: None (occurrence: None)
  Receive Date: 20070524
  Receipt Date: 20070516
  Transmission Date: 20071010
  Serious: Yes (Death, Other)
  Sender: FDA-Public Use
  Company Number: 083-20785-07050888

PATIENT

DRUGS (2)
  1. THALOMID [Suspect]
     Indication: GLIOBLASTOMA MULTIFORME
     Dosage: 100MG, DOSE INCREASED EVERY WEEK UNTIL FINAL DOSE OF 600-1200 MG., AT BEDTIME EVERY NIGHT, ORAL
     Route: 048
  2. TEMOZOLOMIDE (TEMOZOLOMIDE) [Suspect]
     Indication: GLIOBLASTOMA MULTIFORME

REACTIONS (6)
  - BONE MARROW FAILURE [None]
  - CONSTIPATION [None]
  - DRUG TOXICITY [None]
  - EMBOLISM [None]
  - RASH [None]
  - SOMNOLENCE [None]
